FAERS Safety Report 15095886 (Version 7)
Quarter: 2021Q2

REPORT INFORMATION
  Report Type: Other
  Country: US (occurrence: US)
  Receive Date: 20180702
  Receipt Date: 20210507
  Transmission Date: 20210716
  Serious: Yes (Hospitalization, Other)
  Sender: FDA-Public Use
  Company Number: US-ROCHE-2146617

PATIENT
  Age: 80 Year
  Sex: Male
  Weight: 114.41 kg

DRUGS (21)
  1. ESBRIET [Suspect]
     Active Substance: PIRFENIDONE
     Indication: IDIOPATHIC PULMONARY FIBROSIS
     Dosage: ONE 801 MG PILL THREE TIMES A DAY
     Route: 048
     Dates: start: 20180405
  2. KETOTIFEN [Concomitant]
     Active Substance: KETOTIFEN
     Dosage: 4 DROPS IN BOTH EYES
     Route: 047
     Dates: start: 20160517
  3. REFRESH TEARS [Concomitant]
     Active Substance: CARBOXYMETHYLCELLULOSE SODIUM
     Indication: DRY EYE
     Dosage: 1 DROP BOTH EYES
     Dates: start: 20170406
  4. OMEPRAZOLE. [Concomitant]
     Active Substance: OMEPRAZOLE
     Dosage: DELAYED RELEASE
     Route: 048
     Dates: start: 20141209
  5. OXYBUTYNIN CHLORIDE. [Concomitant]
     Active Substance: OXYBUTYNIN CHLORIDE
     Dosage: AS NEEDED 1 TABLET
     Route: 048
     Dates: start: 20170920
  6. ESBRIET [Suspect]
     Active Substance: PIRFENIDONE
     Dosage: 3 TABLETS 270 TABLETS? MAINTENANCE TABLET DOSE 30 DAY SUPPLY REFILL 6 TIMES?WITH MEALS
     Route: 048
     Dates: start: 20180405
  7. ATORVASTATIN [Concomitant]
     Active Substance: ATORVASTATIN
     Dosage: 0.5 TABLET
     Route: 048
     Dates: start: 20160726
  8. LOSARTAN. [Concomitant]
     Active Substance: LOSARTAN
     Dosage: IN MORNING
     Route: 048
     Dates: start: 20170607
  9. MAGNESIUM OXIDE. [Concomitant]
     Active Substance: MAGNESIUM OXIDE
     Dosage: 1 TABLET
     Route: 048
     Dates: start: 20160517
  10. TYLENOL ARTHRITIS PAIN [Concomitant]
     Active Substance: ACETAMINOPHEN
     Indication: PAIN
     Dosage: EXTENDED RELEASE 2 TABLETS?EVERY MORNING 1 AT NOONM 2 IN EVENING
     Route: 048
     Dates: start: 20170426
  11. LORATADINE. [Concomitant]
     Active Substance: LORATADINE
     Route: 048
     Dates: start: 20141209
  12. AMLODIPINE [Concomitant]
     Active Substance: AMLODIPINE BESYLATE
     Dosage: 0.5 TABLET
     Route: 048
     Dates: start: 20170608
  13. TERAZOSIN [Concomitant]
     Active Substance: TERAZOSIN HYDROCHLORIDE
     Dosage: 2 CAPSULES AT BEDTIME
     Route: 048
     Dates: start: 20170608
  14. ASPIRIN. [Concomitant]
     Active Substance: ASPIRIN
     Dosage: 1 TABLET DELAYED RELEASE
     Route: 048
     Dates: start: 20141209
  15. METOPROLOL TARTRATE. [Concomitant]
     Active Substance: METOPROLOL TARTRATE
     Dosage: 1/2 TABLET
     Route: 048
     Dates: start: 20160726
  16. ESBRIET [Suspect]
     Active Substance: PIRFENIDONE
     Route: 048
     Dates: start: 201803
  17. TRIAMCINOLONE ACETONIDE. [Concomitant]
     Active Substance: TRIAMCINOLONE ACETONIDE
     Route: 061
     Dates: start: 20171206
  18. SULINDAC. [Concomitant]
     Active Substance: SULINDAC
     Dosage: 1 TABLET WITH MEALS
     Route: 048
     Dates: start: 20170703
  19. FUROSEMIDE. [Concomitant]
     Active Substance: FUROSEMIDE
     Dosage: IN THE MORNING
     Route: 048
     Dates: start: 20140109
  20. GABAPENTIN. [Concomitant]
     Active Substance: GABAPENTIN
     Dosage: AT BEDTIME
     Route: 048
     Dates: start: 20160517
  21. ESBRIET [Suspect]
     Active Substance: PIRFENIDONE
     Indication: PULMONARY FIBROSIS
     Dosage: 30 DAY SUPPLY 207 TABLETS? INITIAL TABLET TITRATION
     Route: 048
     Dates: start: 20180405

REACTIONS (8)
  - Cardiac disorder [Recovering/Resolving]
  - Cardiac disorder [Recovered/Resolved]
  - Blood pressure abnormal [Recovering/Resolving]
  - Muscular weakness [Recovered/Resolved]
  - Myocardial infarction [Recovered/Resolved]
  - Blood cholesterol increased [Not Recovered/Not Resolved]
  - Fatigue [Recovered/Resolved]
  - Hypoacusis [Not Recovered/Not Resolved]

NARRATIVE: CASE EVENT DATE: 201805
